FAERS Safety Report 5178914-7 (Version None)
Quarter: 2006Q4

REPORT INFORMATION
  Report Type: 
  Country: None (occurrence: None)
  Receive Date: 20061211
  Receipt Date: 20061123
  Transmission Date: 20070319
  Serious: Yes (Other)
  Sender: FDA-Public Use
  Company Number: S06-GER-04879-01

PATIENT
  Age: 33 Year
  Sex: Male
  Weight: 84 kg

DRUGS (5)
  1. ESCITALOPRAM OXALATE [Suspect]
     Indication: DEPRESSION
     Dosage: 10 MG ONCE PO
     Route: 048
     Dates: start: 20061109, end: 20061109
  2. CLONAZEPAM [Suspect]
     Indication: DRUG WITHDRAWAL SYNDROME
     Dosage: 6 MG QD PO
     Route: 048
  3. CLONAZEPAM [Suspect]
     Indication: DRUG WITHDRAWAL SYNDROME
     Dosage: 0.5 MG QD PO
     Route: 048
     Dates: end: 20061106
  4. SUBUTEX [Concomitant]
  5. DOMINAL (PROTHIPENDYL HYDROCHLORIDE) [Concomitant]

REACTIONS (3)
  - CONVULSION [None]
  - DRUG WITHDRAWAL SYNDROME [None]
  - DRY MOUTH [None]
